FAERS Safety Report 8797711 (Version 2)
Quarter: 2013Q1

REPORT INFORMATION
  Report Type: Spontaneous
  Country: US (occurrence: US)
  Receive Date: 20120920
  Receipt Date: 20130121
  Transmission Date: 20140127
  Serious: Yes (Death)
  Sender: FDA-Public Use
  Company Number: PHEH2012US018256

PATIENT
  Sex: Female
  Weight: 26.76 kg

DRUGS (6)
  1. TOBI [Suspect]
     Indication: CYSTIC FIBROSIS
     Dosage: 300MG/ 5ML BID
     Dates: start: 20070726
  2. PULMOZYME [Suspect]
     Dosage: UNK UKN, UNK
  3. PRILOSEC [Concomitant]
     Dosage: 2 DF, DAILY
     Route: 048
  4. CAYSTON [Concomitant]
     Dosage: 3 DF, QD
  5. NOVOLOG [Concomitant]
     Route: 058
  6. HYPERSOL B [Concomitant]
     Dosage: 3 DF, DAILY

REACTIONS (2)
  - Infection [Fatal]
  - Peritonitis [Fatal]
